FAERS Safety Report 16138074 (Version 3)
Quarter: 2019Q2

REPORT INFORMATION
  Report Type: Spontaneous
  Country: US (occurrence: US)
  Receive Date: 20190330
  Receipt Date: 20190614
  Transmission Date: 20190711
  Serious: No
  Sender: FDA-Public Use
  Company Number: US-TEVA-2019-US-1021007

PATIENT
  Sex: Female

DRUGS (7)
  1. QVAR REDIHALER [Suspect]
     Active Substance: BECLOMETHASONE DIPROPIONATE
     Indication: ASTHMA
     Dosage: 4 DOSAGE FORMS DAILY; TWO DOSES/INHALATIONS TWICE DAILY
     Route: 055
     Dates: start: 201810, end: 201901
  2. FLONASE [Concomitant]
     Active Substance: FLUTICASONE PROPIONATE
  3. PROAIR HFA [Concomitant]
     Active Substance: ALBUTEROL SULFATE
  4. SINGULAIR [Concomitant]
     Active Substance: MONTELUKAST SODIUM
  5. LATANOPROST. [Concomitant]
     Active Substance: LATANOPROST
  6. CLARITIN [Concomitant]
     Active Substance: LORATADINE
  7. ALLEGRA [Concomitant]
     Active Substance: FEXOFENADINE HYDROCHLORIDE

REACTIONS (6)
  - Drug ineffective [Unknown]
  - Product substitution issue [Unknown]
  - Dyspnoea [Recovered/Resolved]
  - Asthma [Recovered/Resolved]
  - Device malfunction [Unknown]
  - Cough [Recovered/Resolved]
